FAERS Safety Report 5097202-0 (Version None)
Quarter: 2006Q3

REPORT INFORMATION
  Report Type: 
  Country: None (occurrence: None)
  Receive Date: 20060906
  Receipt Date: 20060526
  Transmission Date: 20061208
  Serious: Yes (Hospitalization)
  Sender: FDA-Public Use
  Company Number: US-AMGEN-US181206

PATIENT
  Sex: Male
  Weight: 74.5 kg

DRUGS (16)
  1. PROCRIT [Suspect]
     Indication: RENAL FAILURE CHRONIC
     Dates: start: 20060401, end: 20060629
  2. PLENDIL [Concomitant]
  3. CELLCEPT [Concomitant]
  4. PREDNISONE TAB [Concomitant]
  5. LIPITOR [Concomitant]
  6. ATENOLOL [Concomitant]
  7. SYNTHROID [Concomitant]
  8. LANTUS [Concomitant]
  9. AMBIEN [Concomitant]
  10. COUMADIN [Concomitant]
  11. ASPIRIN [Concomitant]
  12. LASIX [Concomitant]
  13. ALLOPURINOL [Concomitant]
  14. COLCHICINE [Concomitant]
  15. MINOXIDIL [Concomitant]
  16. SODIUM BICARBONATE [Concomitant]

REACTIONS (2)
  - ANAEMIA [None]
  - BLOOD ERYTHROPOIETIN INCREASED [None]
